FAERS Safety Report 21157292 (Version 1)
Quarter: 2022Q3

REPORT INFORMATION
  Report Type: Spontaneous
  Country: US (occurrence: US)
  Receive Date: 20220801
  Receipt Date: 20220801
  Transmission Date: 20221027
  Serious: No
  Sender: FDA-Public Use
  Company Number: US-BAYER-2022A107138

PATIENT
  Age: 50 Year
  Sex: Female

DRUGS (3)
  1. MIRALAX [Suspect]
     Active Substance: POLYETHYLENE GLYCOL 3350
     Indication: Colonoscopy
     Dosage: UNK
     Dates: start: 2002
  2. MIRALAX [Suspect]
     Active Substance: POLYETHYLENE GLYCOL 3350
     Indication: Colonoscopy
     Dosage: HALF THE BOTTLE WITH 64 OUNCES OF WATER
     Route: 048
     Dates: start: 20220731, end: 20220731
  3. ATENOLOL [Concomitant]
     Active Substance: ATENOLOL

REACTIONS (2)
  - Product use in unapproved indication [Recovered/Resolved with Sequelae]
  - Extra dose administered [Recovered/Resolved with Sequelae]

NARRATIVE: CASE EVENT DATE: 20220731
